FAERS Safety Report 9411682 (Version 1)
Quarter: 2013Q3

REPORT INFORMATION
  Report Type: Spontaneous
  Country: GB (occurrence: GB)
  Receive Date: 20130722
  Receipt Date: 20130722
  Transmission Date: 20140515
  Serious: Yes (Other)
  Sender: FDA-Public Use
  Company Number: GB-MERCK-1305GBR001905

PATIENT
  Age: 46 Year
  Sex: Male

DRUGS (6)
  1. SYCREST [Suspect]
     Indication: BIPOLAR DISORDER
     Dosage: 5 MG, BID
     Route: 060
     Dates: start: 20121220
  2. SYCREST [Suspect]
     Dosage: DOSE INCREASED
  3. SYCREST [Suspect]
     Dosage: 5 MG, BID
  4. CARBAMAZEPINE [Concomitant]
     Indication: MOOD SWINGS
     Dosage: UNK
     Dates: end: 20130615
  5. DEPAKOTE [Concomitant]
     Indication: MOOD SWINGS
     Dosage: UNK
     Dates: start: 2008
  6. THYROXINE [Concomitant]
     Indication: HORMONE REPLACEMENT THERAPY
     Dosage: UNK UNK, QD

REACTIONS (4)
  - Pancytopenia [Unknown]
  - Obsessive-compulsive disorder [Unknown]
  - Sedation [Unknown]
  - Disease recurrence [Recovered/Resolved]
